FAERS Safety Report 4494050-7 (Version None)
Quarter: 2004Q4

REPORT INFORMATION
  Report Type: 
  Country: None (occurrence: None)
  Receive Date: 20041102
  Receipt Date: 20041019
  Transmission Date: 20050328
  Serious: Yes (Life-Threatening, Hospitalization)
  Sender: FDA-Public Use
  Company Number: B0349473A

PATIENT
  Age: 70 Year
  Sex: Male

DRUGS (7)
  1. COREG [Suspect]
     Indication: CARDIAC FAILURE
     Dosage: 12.5 MG TWICE PER DAY ORAL
     Route: 048
     Dates: start: 19980615, end: 20040616
  2. XIPAMIDE (XIPAMIDE) [Suspect]
     Indication: HYPERTENSION
     Dosage: 20 MG PER DAY ORAL
     Route: 048
     Dates: start: 20040115
  3. DOXAZOSIN (DOXAZOSIN) [Suspect]
     Indication: HYPERTENSION
     Dosage: 8 MG PER DAY ORAL
     Route: 048
     Dates: start: 19980615, end: 20040616
  4. MOXONIDINE (MOXONIDINE) [Suspect]
     Indication: HYPERTENSION
     Dosage: .4 MG PER DAY ORAL
     Route: 048
     Dates: start: 20040215, end: 20040616
  5. PROVAS COMP (PROVAS COMP) [Suspect]
     Indication: HYPERTENSION
     Dosage: 172.5 MG PER DAY ORAL
     Route: 048
     Dates: start: 20000615, end: 20040616
  6. GLYBURIDE [Concomitant]
  7. METFORMIN HCL [Concomitant]

REACTIONS (3)
  - BRADYCARDIA [None]
  - HYPOTENSION [None]
  - RENAL ARTERY STENOSIS [None]
